FAERS Safety Report 8131836-1 (Version None)
Quarter: 2012Q1

REPORT INFORMATION
  Report Type: 
  Country: None (occurrence: None)
  Receive Date: 20120213
  Receipt Date: 20120104
  Transmission Date: 20120608
  Serious: Yes (Death)
  Sender: FDA-Public Use
  Company Number: US-COVIDIEN/TYCO HEALTHCARE/MALLINCKRODT-T201200090

PATIENT
  Age: 45 Year
  Sex: Female

DRUGS (10)
  1. GABAPENTIN [Suspect]
     Route: 048
  2. RESTORIL [Suspect]
     Route: 048
  3. PHENOBARBITAL TAB [Suspect]
     Route: 048
  4. CLONAZEPAM [Suspect]
     Route: 048
  5. MONTELUKAST [Suspect]
     Route: 048
  6. SPIRONOLACTONE [Suspect]
     Route: 048
  7. TOPIRAMATE [Suspect]
     Route: 048
  8. NAPROXEN [Suspect]
     Route: 048
  9. DIAZEPAM [Suspect]
     Route: 048
  10. PROGESTIN INJ [Suspect]
     Route: 048

REACTIONS (1)
  - COMPLETED SUICIDE [None]
